FAERS Safety Report 20531952 (Version 3)
Quarter: 2022Q1

REPORT INFORMATION
  Report Type: Spontaneous
  Country: US (occurrence: US)
  Receive Date: 20220301
  Receipt Date: 20220325
  Transmission Date: 20220423
  Serious: Yes (Other)
  Sender: FDA-Public Use
  Company Number: US-PFIZER INC-2020087519

PATIENT
  Age: 68 Year
  Sex: Female

DRUGS (1)
  1. XELJANZ XR [Suspect]
     Active Substance: TOFACITINIB CITRATE
     Indication: Endometrial cancer
     Dosage: 11 MG

REACTIONS (7)
  - Neoplasm malignant [Unknown]
  - Drug dependence [Unknown]
  - Rheumatoid arthritis [Unknown]
  - Off label use [Unknown]
  - Visual impairment [Unknown]
  - Vision blurred [Unknown]
  - Confusional state [Unknown]
